FAERS Safety Report 8840883 (Version 2)
Quarter: 2013Q1

REPORT INFORMATION
  Report Type: Spontaneous
  Country: BR (occurrence: BR)
  Receive Date: 20121015
  Receipt Date: 20130219
  Transmission Date: 20140127
  Serious: Yes (Hospitalization, Other)
  Sender: FDA-Public Use
  Company Number: PHHY2012BR090337

PATIENT
  Sex: Female

DRUGS (3)
  1. EXJADE [Suspect]
     Indication: IRON OVERLOAD
     Dosage: 1 DF, DAILY
     Route: 048
  2. ENDOFOLIN [Concomitant]
     Indication: ANAEMIA
     Dosage: 25 MG, DAILY 1 TABLET
     Route: 048
     Dates: start: 19990723
  3. BENZETACIL [Concomitant]
     Dosage: 2 DF, MONTHLY
     Dates: start: 19990723

REACTIONS (6)
  - Lymphadenitis bacterial [Not Recovered/Not Resolved]
  - Ovarian cyst [Not Recovered/Not Resolved]
  - Stomach mass [Not Recovered/Not Resolved]
  - Abdominal pain [Not Recovered/Not Resolved]
  - Cholelithiasis [Unknown]
  - Pain [Unknown]
